FAERS Safety Report 9120330 (Version 1)
Quarter: 2013Q1

REPORT INFORMATION
  Report Type: Spontaneous
  Country: SE (occurrence: SE)
  Receive Date: 20130226
  Receipt Date: 20130226
  Transmission Date: 20140127
  Serious: Yes (Other)
  Sender: FDA-Public Use
  Company Number: SE-JNJFOC-20130213483

PATIENT
  Age: 53 Year
  Sex: 0

DRUGS (2)
  1. REMICADE [Suspect]
     Indication: POLYARTHRITIS
     Route: 042
     Dates: start: 20120814, end: 20120814
  2. REMICADE [Suspect]
     Indication: POLYARTHRITIS
     Route: 042

REACTIONS (1)
  - Asthma [Unknown]
